FAERS Safety Report 25914203 (Version 3)
Quarter: 2025Q4

REPORT INFORMATION
  Report Type: Spontaneous
  Country: US (occurrence: US)
  Receive Date: 20251013
  Receipt Date: 20251114
  Transmission Date: 20260117
  Serious: No
  Sender: JOHNSON AND JOHNSON
  Company Number: US-JNJFOC-20251008295

PATIENT
  Age: 40 Year
  Sex: Male

DRUGS (1)
  1. TREMFYA [Suspect]
     Active Substance: GUSELKUMAB
     Indication: Crohn^s disease
     Dosage: STRENGTH- 200.00 MG / 2.00 ML
     Route: 065

REACTIONS (2)
  - Underdose [Unknown]
  - Device deployment issue [Unknown]

NARRATIVE: CASE EVENT DATE: 20251003
